FAERS Safety Report 12287237 (Version 4)
Quarter: 2019Q2

REPORT INFORMATION
  Report Type: Spontaneous
  Country: FR (occurrence: FR)
  Receive Date: 20160420
  Receipt Date: 20190429
  Transmission Date: 20190711
  Serious: Yes (Hospitalization, Other)
  Sender: FDA-Public Use
  Company Number: FR-GILEAD-2016-0209074

PATIENT
  Age: 77 Year
  Sex: Male

DRUGS (15)
  1. DESLORATADINE. [Suspect]
     Active Substance: DESLORATADINE
     Indication: PRODUCT USED FOR UNKNOWN INDICATION
     Dosage: 1 DF, QD
     Route: 048
     Dates: start: 2014, end: 20160331
  2. ERGYPHILUS CONFORT [Suspect]
     Active Substance: DIETARY SUPPLEMENT
     Indication: PRODUCT USED FOR UNKNOWN INDICATION
     Dosage: 2 DF, BID
     Route: 048
     Dates: start: 201509, end: 20160331
  3. AVODART [Suspect]
     Active Substance: DUTASTERIDE
     Indication: PRODUCT USED FOR UNKNOWN INDICATION
     Dosage: 1 DF, QD
     Route: 048
     Dates: start: 2013, end: 20160331
  4. PRIVIGEN [Suspect]
     Active Substance: HUMAN IMMUNOGLOBULIN G
     Dosage: UNK
     Route: 042
  5. PRIVIGEN [Suspect]
     Active Substance: HUMAN IMMUNOGLOBULIN G
     Dosage: UNK
     Route: 042
  6. JOSIR [Suspect]
     Active Substance: TAMSULOSIN
     Indication: PRODUCT USED FOR UNKNOWN INDICATION
     Dosage: 1 DF, QD
     Route: 048
     Dates: start: 2013, end: 20160331
  7. RITUXIMAB. [Suspect]
     Active Substance: RITUXIMAB
     Indication: CHRONIC LYMPHOCYTIC LEUKAEMIA
     Dosage: UNK
     Route: 042
     Dates: end: 20160321
  8. PRIVIGEN [Suspect]
     Active Substance: HUMAN IMMUNOGLOBULIN G
     Indication: IMMUNODEFICIENCY
     Dosage: 40 G, CYCLICAL
     Route: 042
     Dates: start: 20160303, end: 20160331
  9. NEO-CODION (CODEINE CAMSILATE) [Suspect]
     Active Substance: CODEINE
     Indication: BRONCHITIS CHRONIC
     Dosage: 15 ML, QD
     Route: 048
     Dates: start: 20150101, end: 20160331
  10. LOPERAMIDE [Suspect]
     Active Substance: LOPERAMIDE
     Indication: PRODUCT USED FOR UNKNOWN INDICATION
     Dosage: 1 DF, QD
     Route: 048
     Dates: start: 2014, end: 20160331
  11. PRIVIGEN [Suspect]
     Active Substance: HUMAN IMMUNOGLOBULIN G
     Dosage: UNK
     Route: 042
  12. ZYDELIG [Suspect]
     Active Substance: IDELALISIB
     Indication: CHRONIC LYMPHOCYTIC LEUKAEMIA
     Dosage: 100 MG, TID
     Route: 048
     Dates: start: 201412
  13. ZYDELIG [Suspect]
     Active Substance: IDELALISIB
     Dosage: 150 MG, QD
     Route: 048
     Dates: start: 201506, end: 20160321
  14. ZITHROMAX [Suspect]
     Active Substance: AZITHROMYCIN DIHYDRATE
     Indication: ANTIBIOTIC THERAPY
     Dosage: 1 DOSAGE FORM TIW
     Route: 048
     Dates: start: 201510, end: 20160316
  15. SPASFON [PHLOROGLUCINOL;TRIMETHYLPHLOROGLUCINOL] [Suspect]
     Active Substance: PHLOROGLUCINOL\1,3,5-TRIMETHOXYBENZENE
     Indication: PRODUCT USED FOR UNKNOWN INDICATION
     Dosage: 2 DF, QD
     Route: 048
     Dates: start: 2013, end: 20160331

REACTIONS (10)
  - Hepatic function abnormal [Recovered/Resolved]
  - Rash [Recovered/Resolved]
  - Papule [Recovered/Resolved]
  - Dermatitis exfoliative generalised [Recovered/Resolved]
  - Drug reaction with eosinophilia and systemic symptoms [Recovered/Resolved]
  - Eosinophilia [Recovered/Resolved]
  - Skin exfoliation [Recovered/Resolved]
  - Oedema [Recovered/Resolved]
  - Off label use [Recovered/Resolved]
  - Rash erythematous [Recovered/Resolved]

NARRATIVE: CASE EVENT DATE: 201602
